FAERS Safety Report 8965529 (Version 1)
Quarter: 2012Q4

REPORT INFORMATION
  Report Type: Spontaneous
  Country: US (occurrence: None)
  Receive Date: 20121212
  Receipt Date: 20121212
  Transmission Date: 20130627
  Serious: No
  Sender: FDA-Public Use
  Company Number: None

PATIENT
  Sex: Female

DRUGS (1)
  1. AFINITOR [Suspect]
     Indication: LIVER CARCINOMA
     Dosage: 10 mg QD PO
     Route: 048
     Dates: start: 201208, end: 201211

REACTIONS (2)
  - Treatment failure [None]
  - Hepatic lesion [None]
